FAERS Safety Report 13187564 (Version 2)
Quarter: 2017Q2

REPORT INFORMATION
  Report Type: Spontaneous
  Country: US (occurrence: US)
  Receive Date: 20170206
  Receipt Date: 20170403
  Transmission Date: 20170830
  Serious: No
  Sender: FDA-Public Use
  Company Number: US-PFIZER INC-2017045747

PATIENT
  Age: 51 Year
  Sex: Female

DRUGS (1)
  1. MEDROL [Suspect]
     Active Substance: METHYLPREDNISOLONE
     Dosage: UNK

REACTIONS (6)
  - Chills [Recovered/Resolved]
  - Anger [Recovered/Resolved]
  - Drug hypersensitivity [Recovered/Resolved]
  - Swelling face [Unknown]
  - Emotional disorder [Recovered/Resolved]
  - Headache [Recovered/Resolved]
